FAERS Safety Report 8747096 (Version 4)
Quarter: 2018Q3

REPORT INFORMATION
  Report Type: Report from Study
  Country: CA (occurrence: CA)
  Receive Date: 20120827
  Receipt Date: 20180705
  Transmission Date: 20181010
  Serious: Yes (Life-Threatening, Hospitalization, Disabling, Other)
  Sender: FDA-Public Use
  Company Number: CA-JNJFOC-20120810471

PATIENT
  Age: 60 Year
  Sex: Female
  Weight: 107 kg

DRUGS (7)
  1. PREDNISONE. [Concomitant]
     Active Substance: PREDNISONE
     Route: 048
  2. BENADRYL [Concomitant]
     Active Substance: DIPHENHYDRAMINE HYDROCHLORIDE
     Indication: PREMEDICATION
     Route: 048
  3. METHOTREXATE. [Concomitant]
     Active Substance: METHOTREXATE
     Dosage: 8 TABS
     Route: 048
     Dates: start: 1997
  4. ALTACE [Concomitant]
     Active Substance: RAMIPRIL
     Route: 048
  5. HYDROCHLOROTHIAZIDE. [Concomitant]
     Active Substance: HYDROCHLOROTHIAZIDE
     Route: 048
  6. REMICADE [Suspect]
     Active Substance: INFLIXIMAB
     Indication: RHEUMATOID ARTHRITIS
     Route: 042
     Dates: start: 20020828, end: 20120820
  7. FOLIC ACID. [Concomitant]
     Active Substance: FOLIC ACID
     Route: 048
     Dates: start: 1997

REACTIONS (4)
  - Reduced facial expression [Unknown]
  - Brain abscess [Recovered/Resolved]
  - Migraine [Unknown]
  - Blindness unilateral [Unknown]

NARRATIVE: CASE EVENT DATE: 2012
